FAERS Safety Report 9128694 (Version 2)
Quarter: 2013Q2

REPORT INFORMATION
  Report Type: Spontaneous
  Country: US (occurrence: US)
  Receive Date: 20130125
  Receipt Date: 20130418
  Transmission Date: 20140414
  Serious: Yes (Other)
  Sender: FDA-Public Use
  Company Number: US-BAYER-2013-006194

PATIENT
  Age: 67 Year
  Sex: Female
  Weight: 104.31 kg

DRUGS (5)
  1. ALEVE CAPLET/TABLET,MIDOL EXTENDED RELIEF CAPLET [Suspect]
     Dosage: 1 DF, ONCE
     Route: 048
     Dates: start: 20130107, end: 20130107
  2. CHLORPROPAMIDE [Concomitant]
  3. LOSARTAN POTASSIUM [Concomitant]
  4. FUROSEMIDE [Concomitant]
  5. ADVIL [Concomitant]

REACTIONS (2)
  - Oral mucosal blistering [Recovered/Resolved]
  - Rash [Recovered/Resolved]
